FAERS Safety Report 16920805 (Version 1)
Quarter: 2019Q4

REPORT INFORMATION
  Report Type: Spontaneous
  Country: US (occurrence: US)
  Receive Date: 20191015
  Receipt Date: 20191015
  Transmission Date: 20200122
  Serious: No
  Sender: FDA-Public Use
  Company Number: US-C B FLEET CO INC-201810-US-002386

PATIENT
  Sex: Female

DRUGS (1)
  1. MONISTAT 7 7-DAY DISPOSABLE APPLICATORS [Suspect]
     Active Substance: MICONAZOLE NITRATE
     Indication: FUNGAL INFECTION
     Dosage: 100 MILLIGRAMS FOR 6 DAYS
     Route: 067
     Dates: start: 20180928

REACTIONS (1)
  - Rash erythematous [Not Recovered/Not Resolved]
